FAERS Safety Report 9468036 (Version 1)
Quarter: 2013Q3

REPORT INFORMATION
  Report Type: Spontaneous
  Country: US (occurrence: None)
  Receive Date: 20130819
  Receipt Date: 20130819
  Transmission Date: 20140515
  Serious: No
  Sender: FDA-Public Use
  Company Number: None

PATIENT
  Sex: 0

DRUGS (1)
  1. RIVAROXABAN [Suspect]

REACTIONS (7)
  - Medication error [None]
  - Loss of consciousness [None]
  - Brain death [None]
  - Oral infection [None]
  - Bronchitis [None]
  - Sepsis [None]
  - Intracranial aneurysm [None]
